FAERS Safety Report 8138587-8 (Version None)
Quarter: 2012Q1

REPORT INFORMATION
  Report Type: 
  Country: None (occurrence: None)
  Receive Date: 20120215
  Receipt Date: 20120206
  Transmission Date: 20120608
  Serious: Yes (Hospitalization, Other)
  Sender: FDA-Public Use
  Company Number: US-AMGEN-USASP2011045041

PATIENT
  Age: 9 Year
  Sex: Male

DRUGS (4)
  1. XGEVA [Suspect]
     Indication: FIBROUS DYSPLASIA OF BONE
     Dosage: 1.0 MG, ONE TIME DOSE
     Dates: start: 20110201
  2. XGEVA [Suspect]
     Dosage: 1.25 MG, Q3MO
  3. XGEVA [Suspect]
     Dosage: 1.5 MG, Q3MO
  4. XGEVA [Suspect]
     Dosage: 1.75 MG, Q3MO

REACTIONS (5)
  - VOMITING [None]
  - HYPERCALCAEMIA [None]
  - HYPOPHOSPHATAEMIA [None]
  - LOWER LIMB FRACTURE [None]
  - FALL [None]
